FAERS Safety Report 20410691 (Version 1)
Quarter: 2022Q1

REPORT INFORMATION
  Report Type: Spontaneous
  Country: CN (occurrence: CN)
  Receive Date: 20220201
  Receipt Date: 20220201
  Transmission Date: 20220423
  Serious: Yes (Life-Threatening)
  Sender: FDA-Public Use
  Company Number: CN-NOVARTISPH-NVSC2022CN020708

PATIENT
  Age: 74 Year
  Sex: Male
  Weight: 70 kg

DRUGS (7)
  1. ENTRESTO [Suspect]
     Active Substance: SACUBITRIL\VALSARTAN
     Indication: Acute myocardial infarction
     Dosage: 25 MG, BID
     Route: 048
     Dates: start: 20220121, end: 20220127
  2. ISOSORBIDE MONONITRATE [Suspect]
     Active Substance: ISOSORBIDE MONONITRATE
     Indication: Acute myocardial infarction
     Dosage: 30 MG, QD
     Route: 048
     Dates: start: 20220121, end: 20220129
  3. DIAZEPAM [Suspect]
     Active Substance: DIAZEPAM
     Indication: Restlessness
     Dosage: 5 MG, BID
     Route: 042
     Dates: start: 20220123, end: 20220123
  4. DIAZEPAM [Suspect]
     Active Substance: DIAZEPAM
     Indication: Agitation
  5. DROPERIDOL [Suspect]
     Active Substance: DROPERIDOL
     Indication: Restlessness
     Dosage: 2.50 MG, QD
     Route: 042
     Dates: start: 20220123, end: 20220123
  6. DROPERIDOL [Suspect]
     Active Substance: DROPERIDOL
     Indication: Agitation
  7. SODIUM CHLORIDE [Concomitant]
     Active Substance: SODIUM CHLORIDE
     Indication: Product used for unknown indication
     Dosage: 10 ML, BID
     Route: 042
     Dates: start: 20220123, end: 20220123

REACTIONS (1)
  - Hypotension [Recovered/Resolved]

NARRATIVE: CASE EVENT DATE: 20220123
